FAERS Safety Report 7461372-7 (Version None)
Quarter: 2011Q2

REPORT INFORMATION
  Report Type: 
  Country: None (occurrence: None)
  Receive Date: 20110506
  Receipt Date: 20110503
  Transmission Date: 20111010
  Serious: No
  Sender: FDA-Public Use
  Company Number: US-BIOGENIDEC-2011BI016451

PATIENT
  Age: 53 Year
  Sex: Female

DRUGS (2)
  1. AVONEX [Suspect]
     Indication: MULTIPLE SCLEROSIS
     Route: 030
     Dates: start: 20030101, end: 20070101
  2. AVONEX [Suspect]
     Route: 030
     Dates: start: 20000614, end: 20030101

REACTIONS (2)
  - URINARY INCONTINENCE [None]
  - URINARY TRACT INFECTION [None]
